FAERS Safety Report 8444889-8 (Version None)
Quarter: 2012Q2

REPORT INFORMATION
  Report Type: 
  Country: None (occurrence: None)
  Receive Date: 20120611
  Receipt Date: 20120530
  Transmission Date: 20120825
  Serious: Yes (Hospitalization, Other)
  Sender: FDA-Public Use
  Company Number: ACO_30290_2012

PATIENT
  Age: 69 Year
  Sex: Male
  Weight: 108.8 kg

DRUGS (4)
  1. ANTIHYPERTENSIVES [Concomitant]
  2. EFFEXOR [Concomitant]
  3. AMPYRA [Suspect]
     Indication: GAIT DISTURBANCE
     Dosage: 10 MG, BID, ORAL
     Route: 048
     Dates: start: 20110701, end: 20120502
  4. TYSABRI [Suspect]
     Indication: PRODUCT USED FOR UNKNOWN INDICATION
     Dates: end: 20120101

REACTIONS (5)
  - DRUG INEFFECTIVE [None]
  - HERPES ZOSTER [None]
  - CONVULSION [None]
  - PROGRESSIVE MULTIFOCAL LEUKOENCEPHALOPATHY [None]
  - MULTIPLE SCLEROSIS RELAPSE [None]
